FAERS Safety Report 20387002 (Version 1)
Quarter: 2022Q1

REPORT INFORMATION
  Report Type: Spontaneous
  Country: US (occurrence: US)
  Receive Date: 20220127
  Receipt Date: 20220127
  Transmission Date: 20220423
  Serious: No
  Sender: FDA-Public Use
  Company Number: US-ALLERGAN-2117496US

PATIENT
  Sex: Female

DRUGS (3)
  1. BOTOX [Suspect]
     Active Substance: ONABOTULINUMTOXINA
     Indication: Skin wrinkling
     Dosage: 25 UNITS, SINGLE
  2. BOTOX [Suspect]
     Active Substance: ONABOTULINUMTOXINA
     Dosage: 15 UNITS, SINGLE
  3. DYSPORT [Concomitant]
     Active Substance: ABOBOTULINUMTOXINA

REACTIONS (2)
  - Off label use [Unknown]
  - Drug ineffective [Unknown]
